FAERS Safety Report 16437090 (Version 1)
Quarter: 2019Q2

REPORT INFORMATION
  Report Type: Spontaneous
  Country: IL (occurrence: IL)
  Receive Date: 20190615
  Receipt Date: 20190615
  Transmission Date: 20190711
  Serious: Yes (Life-Threatening)
  Sender: FDA-Public Use
  Company Number: PHHY2019IL137695

PATIENT
  Age: 36 Year
  Sex: Female

DRUGS (1)
  1. CLOMIPRAMINE [Suspect]
     Active Substance: CLOMIPRAMINE
     Indication: OBSESSIVE-COMPULSIVE DISORDER
     Dosage: UNK
     Route: 065

REACTIONS (8)
  - Pneumonia [Recovering/Resolving]
  - Toxicity to various agents [Recovering/Resolving]
  - Coma [Recovering/Resolving]
  - Multiple organ dysfunction syndrome [Recovering/Resolving]
  - Acute hepatic failure [Recovering/Resolving]
  - Acute kidney injury [Recovering/Resolving]
  - Somnolence [Recovering/Resolving]
  - Hypotension [Recovering/Resolving]
